FAERS Safety Report 10723610 (Version 1)
Quarter: 2015Q1

REPORT INFORMATION
  Report Type: Spontaneous
  Country: US (occurrence: None)
  Receive Date: 20150116
  Receipt Date: 20150116
  Transmission Date: 20150721
  Serious: Yes (Hospitalization)
  Sender: FDA-Public Use
  Company Number: None

PATIENT
  Age: 72 Year
  Sex: Female

DRUGS (1)
  1. EXENATIDE [Suspect]
     Active Substance: EXENATIDE
     Indication: DIABETES MELLITUS

REACTIONS (3)
  - Pancreatic duct dilatation [None]
  - Pancreatitis [None]
  - Abdominal pain upper [None]

NARRATIVE: CASE EVENT DATE: 20120522
